FAERS Safety Report 12858754 (Version 2)
Quarter: 2016Q4

REPORT INFORMATION
  Report Type: Spontaneous
  Country: JP (occurrence: JP)
  Receive Date: 20161018
  Receipt Date: 20161019
  Transmission Date: 20170207
  Serious: Yes (Hospitalization)
  Sender: FDA-Public Use
  Company Number: JP-TEVA-2016-JP-002296J

PATIENT
  Age: 75 Year
  Sex: Male

DRUGS (6)
  1. DEXTROMETHORPHAN HYDROBROMIDE HYDRATE [Concomitant]
     Active Substance: DEXTROMETHORPHAN HYDROBROMIDE
     Indication: UPPER RESPIRATORY TRACT INFLAMMATION
     Dosage: 30 MILLIGRAM DAILY;
     Route: 048
     Dates: start: 20160921, end: 20160925
  2. METHYLEPHEDRINE [Concomitant]
     Active Substance: METHYLEPHEDRINE
     Indication: UPPER RESPIRATORY TRACT INFLAMMATION
     Route: 048
     Dates: start: 20160921, end: 20160925
  3. CLARITHROMYCIN TABLET 200MG ^TAIYO^ [Suspect]
     Active Substance: CLARITHROMYCIN
     Indication: PHARYNGITIS
     Dosage: 400 MILLIGRAM DAILY;
     Route: 048
     Dates: start: 20160921, end: 20160925
  4. CHLORPHENIRAMINE MALEATE. [Concomitant]
     Active Substance: CHLORPHENIRAMINE MALEATE
     Indication: UPPER RESPIRATORY TRACT INFLAMMATION
     Dosage: 4 MILLIGRAM DAILY;
     Route: 048
     Dates: start: 20160921, end: 20160925
  5. CALONAL [Concomitant]
     Active Substance: ACETAMINOPHEN
     Indication: UPPER RESPIRATORY TRACT INFLAMMATION
     Dosage: 600 MILLIGRAM DAILY;
     Route: 048
     Dates: start: 20160921, end: 20160925
  6. KAKKONTO [Concomitant]
     Active Substance: HERBALS
     Indication: CHILLS
     Route: 065
     Dates: start: 20160927

REACTIONS (1)
  - Myoclonic epilepsy [Recovered/Resolved]

NARRATIVE: CASE EVENT DATE: 20160927
